FAERS Safety Report 7456359-4 (Version None)
Quarter: 2011Q2

REPORT INFORMATION
  Report Type: 
  Country: None (occurrence: None)
  Receive Date: 20110503
  Receipt Date: 20110419
  Transmission Date: 20111010
  Serious: Yes (Death)
  Sender: FDA-Public Use
  Company Number: IL-SPECTRUM PHARMACEUTICALS, INC.-11-Z-IL-00050

PATIENT

DRUGS (10)
  1. CYTARABINE [Suspect]
     Indication: STEM CELL TRANSPLANT
  2. MELPHALAN [Suspect]
     Indication: LYMPHOMA
  3. CARMUSTINE [Suspect]
     Indication: STEM CELL TRANSPLANT
  4. ETOPOSIDE [Suspect]
     Indication: STEM CELL TRANSPLANT
  5. ZEVALIN [Suspect]
     Indication: SURGICAL PRECONDITIONING
     Dosage: 0.4 MCI/KG, SINGLE
     Route: 065
  6. ETOPOSIDE [Suspect]
     Indication: LYMPHOMA
     Route: 065
  7. CYTARABINE [Suspect]
     Indication: LYMPHOMA
  8. ZEVALIN [Suspect]
     Indication: LYMPHOMA
     Dosage: 0.4 MCI/KG, SINGLE
     Route: 065
  9. CARMUSTINE [Suspect]
     Indication: LYMPHOMA
     Route: 065
  10. MELPHALAN [Suspect]
     Indication: STEM CELL TRANSPLANT

REACTIONS (2)
  - ENCEPHALITIS VIRAL [None]
  - OFF LABEL USE [None]
